FAERS Safety Report 6256053-1 (Version None)
Quarter: 2009Q2

REPORT INFORMATION
  Report Type: 
  Country: None (occurrence: None)
  Receive Date: 20090630
  Receipt Date: 20090630
  Transmission Date: 20091009
  Serious: Yes (Other)
  Sender: FDA-Public Use
  Company Number: None

PATIENT
  Age: 69 Year
  Sex: Female
  Weight: 69.4003 kg

DRUGS (1)
  1. ARTHROTEC [Suspect]
     Indication: PAIN IN EXTREMITY
     Dosage: 1 TABLET WITH MEAL 2 TIMES A DAY SUBCONJUNCTIVAL
     Route: 057
     Dates: start: 20090601, end: 20090625

REACTIONS (5)
  - ABDOMINAL DISTENSION [None]
  - ABDOMINAL PAIN [None]
  - ASTHENIA [None]
  - DIARRHOEA [None]
  - FLATULENCE [None]
